FAERS Safety Report 4582515-9 (Version None)
Quarter: 2005Q1

REPORT INFORMATION
  Report Type: 
  Country: None (occurrence: None)
  Receive Date: 20050215
  Receipt Date: 20050203
  Transmission Date: 20050727
  Serious: Yes (Hospitalization, Other)
  Sender: FDA-Public Use
  Company Number: JP-NOVOPROD-242112

PATIENT
  Age: 58 Year
  Sex: Male
  Weight: 51 kg

DRUGS (3)
  1. PENFILL N CHU [Suspect]
     Indication: INSULIN-REQUIRING TYPE II DIABETES MELLITUS
     Dosage: 8 IU, QD
     Dates: start: 20040512
  2. KINEDAK [Concomitant]
     Dates: start: 20040407
  3. GLIMICRON [Concomitant]
     Dates: start: 20040407, end: 20040512

REACTIONS (4)
  - ALANINE AMINOTRANSFERASE INCREASED [None]
  - ASPARTATE AMINOTRANSFERASE INCREASED [None]
  - GAMMA-GLUTAMYLTRANSFERASE INCREASED [None]
  - HEPATIC FUNCTION ABNORMAL [None]
